FAERS Safety Report 6386320-2 (Version None)
Quarter: 2009Q4

REPORT INFORMATION
  Report Type: 
  Country: None (occurrence: None)
  Receive Date: 20091002
  Receipt Date: 20090922
  Transmission Date: 20100525
  Serious: Yes (Other)
  Sender: FDA-Public Use
  Company Number: PHEH2009US08299

PATIENT
  Sex: Male
  Weight: 90 kg

DRUGS (28)
  1. EXJADE [Suspect]
     Indication: HAEMOCHROMATOSIS
     Dosage: 500 MG QD
     Route: 048
     Dates: start: 20081006, end: 20090820
  2. EXJADE [Suspect]
     Indication: IRON OVERLOAD
  3. CELLCEPT [Concomitant]
     Dosage: 1000 TID
     Route: 048
  4. PROGRAF [Concomitant]
     Dosage: 1 MG EVERY WEDNESDAY
  5. VFEND [Concomitant]
     Dosage: 200 MG, BID
     Route: 048
  6. ACYCLOVIR [Concomitant]
     Dosage: 800 MG, BID
     Route: 048
  7. COUMADIN [Concomitant]
     Dosage: 2.5 MG, QD
     Route: 048
  8. AVALIDE [Concomitant]
     Dosage: 300/12.5 MG
  9. SODIUM BICARBONATE IN PLASTIC CONTAINER [Concomitant]
     Dosage: 150 MG, TID
     Route: 048
  10. NEXIUM [Concomitant]
     Dosage: 40 MG, QD
     Route: 048
  11. CALCIUM CITRATE [Concomitant]
     Dosage: 500 MG, BID
  12. VITAMIN B COMPLEX CAP [Concomitant]
     Dosage: UNK
  13. MAGNESIUM [Concomitant]
     Dosage: UNK
  14. FOLIC ACID [Concomitant]
     Dosage: 1 MG, QD
     Route: 048
  15. MUCINEX [Concomitant]
     Dosage: 1200 MG, QD
     Route: 048
  16. TOBRAMYCIN [Concomitant]
     Dosage: 300 MG, QD
  17. OXYCONTIN [Concomitant]
     Dosage: 20 MG, Q12H PRN
     Route: 048
  18. OXYCODONE [Concomitant]
     Dosage: 5-10MG, PRN
     Route: 048
  19. CITALOPRAM HYDROBROMIDE [Concomitant]
     Dosage: 40 MG, QD
     Route: 048
  20. MIRTAZAPINE [Concomitant]
     Dosage: 15 MG, QD
     Route: 048
  21. PRO-AIR (PROCATEROL HYDROCHLORIDE) [Concomitant]
     Dosage: 2 PUFFS Q4H AS NEEDED
  22. VITAMIN D [Concomitant]
     Dosage: 1000 U, QD
     Route: 048
  23. IMMUNGLOBULIN ^ALPHA^ [Concomitant]
     Dosage: 20 G, QMO
     Route: 042
  24. ADVAIR DISKUS 100/50 [Concomitant]
     Dosage: 500/50 MCG ONE PUFF BID
  25. URSODIOL [Concomitant]
     Dosage: 300 MG, BID
  26. SULFONAMIDES [Concomitant]
  27. FUROSEMIDE [Concomitant]
  28. STEROIDS NOS [Concomitant]

REACTIONS (9)
  - ASCITES [None]
  - DEEP VEIN THROMBOSIS [None]
  - DIARRHOEA [None]
  - HEPATIC CIRRHOSIS [None]
  - INAPPROPRIATE SCHEDULE OF DRUG ADMINISTRATION [None]
  - LIVER DISORDER [None]
  - RENAL FAILURE [None]
  - SWELLING FACE [None]
  - WEIGHT INCREASED [None]
